FAERS Safety Report 6408708-3 (Version None)
Quarter: 2009Q4

REPORT INFORMATION
  Report Type: 
  Country: None (occurrence: None)
  Receive Date: 20091019
  Receipt Date: 20091002
  Transmission Date: 20100525
  Serious: Yes (Death)
  Sender: FDA-Public Use
  Company Number: 003308

PATIENT
  Age: 84 Year
  Sex: Male

DRUGS (1)
  1. PEGAPTANIB SODIUM (PEGAPTANIB SODIUM) UNKNOWN [Suspect]
     Indication: MACULAR DEGENERATION
     Dosage: 0.3, INTRAOCULAR
     Route: 031
     Dates: start: 20090116, end: 20090424

REACTIONS (1)
  - DEATH [None]
